FAERS Safety Report 7987216-2 (Version None)
Quarter: 2011Q4

REPORT INFORMATION
  Report Type: 
  Country: None (occurrence: None)
  Receive Date: 20111216
  Receipt Date: 20111202
  Transmission Date: 20120403
  Serious: Yes (Other)
  Sender: FDA-Public Use
  Company Number: PHHY2011AU106161

PATIENT
  Age: 63 Year
  Sex: Male

DRUGS (3)
  1. PREDNISOLONE [Suspect]
  2. BRIMONIDINE TARTRATE [Suspect]
  3. CHLORAMPHENICOL [Suspect]

REACTIONS (8)
  - CORNEAL DISORDER [None]
  - VIRAL UVEITIS [None]
  - VISUAL ACUITY REDUCED [None]
  - CORNEAL DEGENERATION [None]
  - CORNEAL EPITHELIAL MICROCYSTS [None]
  - CORNEAL DEPOSITS [None]
  - TREATMENT FAILURE [None]
  - CORNEAL OEDEMA [None]
